FAERS Safety Report 5346417-2 (Version None)
Quarter: 2007Q2

REPORT INFORMATION
  Report Type: 
  Country: None (occurrence: None)
  Receive Date: 20070605
  Receipt Date: 20070523
  Transmission Date: 20071010
  Serious: Yes (Hospitalization, Other)
  Sender: FDA-Public Use
  Company Number: US-SHR-US-2007-019023

PATIENT
  Age: 66 Year
  Sex: Female
  Weight: 78.912 kg

DRUGS (9)
  1. FLUDARA [Suspect]
     Dosage: 6 CYCLES
     Route: 042
     Dates: start: 20040501
  2. MITOXANTRONE [Suspect]
     Indication: NON-HODGKIN'S LYMPHOMA
     Dosage: 6 CYCLES
     Route: 042
     Dates: start: 20040501
  3. RITUXAN [Suspect]
     Indication: NON-HODGKIN'S LYMPHOMA
     Dosage: 6 CYCLES
     Route: 042
     Dates: start: 20040501
  4. INVESTIGATIONAL DRUG (TOSITUMOMAB) [Suspect]
     Indication: NON-HODGKIN'S LYMPHOMA
     Dosage: 450MG/5MCI SINGLE DOSE
     Route: 042
     Dates: start: 20010711, end: 20010711
  5. INVESTIGATIONAL DRUG (TOSITUMOMAB) [Suspect]
     Dosage: 450MG/91.45 MCI SINGLE DOSE
     Route: 042
     Dates: start: 20010718, end: 20010718
  6. LEVOTHYROXINE SODIUM [Concomitant]
  7. ZOLPIDEM TARTRATE [Concomitant]
  8. PARACETAMOL [Concomitant]
  9. LORAZEPAM [Concomitant]

REACTIONS (1)
  - MYELODYSPLASTIC SYNDROME [None]
